FAERS Safety Report 9931147 (Version 2)
Quarter: 2014Q3

REPORT INFORMATION
  Report Type: Report from Study
  Country: FR (occurrence: FR)
  Receive Date: 20140227
  Receipt Date: 20140820
  Transmission Date: 20150326
  Serious: Yes (Hospitalization, Other)
  Sender: FDA-Public Use
  Company Number: FR-ROCHE-1354915

PATIENT
  Age: 68 Year
  Sex: Male
  Weight: 83 kg

DRUGS (13)
  1. NOROXINE [Concomitant]
     Active Substance: NORFLOXACIN
     Route: 065
     Dates: start: 20131109
  2. PEGINTERFERON ALFA-2A [Suspect]
     Active Substance: PEGINTERFERON ALFA-2A
     Indication: HEPATITIS C
     Route: 058
     Dates: start: 20130322, end: 20131128
  3. KARDEGIC [Concomitant]
     Active Substance: ASPIRIN LYSINE
  4. RIBAVIRIN. [Suspect]
     Active Substance: RIBAVIRIN
     Route: 065
     Dates: start: 20130325
  5. NEORECORMON [Concomitant]
     Active Substance: ERYTHROPOIETIN
     Route: 065
     Dates: start: 20130502
  6. XATRAL [Concomitant]
     Active Substance: ALFUZOSIN
     Route: 065
     Dates: start: 2012
  7. METEOSPASMYL [Concomitant]
     Active Substance: ALVERINE CITRATE\DIMETHICONE
     Route: 065
     Dates: start: 20130613
  8. PREVISCAN (FRANCE) [Concomitant]
     Active Substance: FLUINDIONE
     Route: 065
     Dates: start: 20130406
  9. BOCEPREVIR [Suspect]
     Active Substance: BOCEPREVIR
     Indication: HEPATITIS C
     Route: 048
     Dates: start: 20130419, end: 20131128
  10. MOPRAL [Concomitant]
     Active Substance: OMEPRAZOLE SODIUM
     Route: 065
     Dates: start: 2012
  11. RIBAVIRIN. [Suspect]
     Active Substance: RIBAVIRIN
     Indication: HEPATITIS C
     Route: 065
     Dates: start: 20130312, end: 20131128
  12. LASILIX [Concomitant]
     Active Substance: FUROSEMIDE
     Route: 065
     Dates: start: 20130107
  13. TEMERIT [Concomitant]
     Active Substance: NEBIVOLOL
     Route: 065
     Dates: start: 2012

REACTIONS (4)
  - Dysuria [Recovered/Resolved with Sequelae]
  - Neutropenia [Recovered/Resolved]
  - Leukopenia [Recovered/Resolved]
  - Cough [Not Recovered/Not Resolved]

NARRATIVE: CASE EVENT DATE: 20130516
